FAERS Safety Report 12720232 (Version 1)
Quarter: 2016Q3

REPORT INFORMATION
  Report Type: Spontaneous
  Country: US (occurrence: US)
  Receive Date: 20160907
  Receipt Date: 20160907
  Transmission Date: 20161109
  Serious: No
  Sender: FDA-Public Use
  Company Number: None

PATIENT
  Age: 49 Year
  Sex: Male
  Weight: 76.05 kg

DRUGS (1)
  1. AUVI-Q [Suspect]
     Active Substance: EPINEPHRINE
     Route: 030
     Dates: start: 20160728

REACTIONS (3)
  - Accidental exposure to product [None]
  - Anxiety [None]
  - Heart rate increased [None]

NARRATIVE: CASE EVENT DATE: 20160728
